FAERS Safety Report 19810588 (Version 3)
Quarter: 2021Q4

REPORT INFORMATION
  Report Type: Spontaneous
  Country: JP (occurrence: JP)
  Receive Date: 20210909
  Receipt Date: 20211229
  Transmission Date: 20220303
  Serious: Yes (Other)
  Sender: FDA-Public Use
  Company Number: JP-PFM-2021-08925

PATIENT

DRUGS (25)
  1. PROPRANOLOL HYDROCHLORIDE [Suspect]
     Active Substance: PROPRANOLOL HYDROCHLORIDE
     Indication: Infantile haemangioma
     Dosage: 0.937 MG, BID (2/DAY)
     Route: 048
     Dates: start: 20200902, end: 20200903
  2. PROPRANOLOL HYDROCHLORIDE [Suspect]
     Active Substance: PROPRANOLOL HYDROCHLORIDE
     Dosage: 1.875 MG, BID (2/DAY)
     Route: 048
     Dates: start: 20200904, end: 20200907
  3. PROPRANOLOL HYDROCHLORIDE [Suspect]
     Active Substance: PROPRANOLOL HYDROCHLORIDE
     Dosage: 3 MG, BID (2/DAY)
     Route: 048
     Dates: start: 20200908, end: 20200918
  4. PROPRANOLOL HYDROCHLORIDE [Suspect]
     Active Substance: PROPRANOLOL HYDROCHLORIDE
     Dosage: 3.375 MG, BID (2/DAY)
     Route: 048
     Dates: start: 20200919, end: 20201009
  5. PROPRANOLOL HYDROCHLORIDE [Suspect]
     Active Substance: PROPRANOLOL HYDROCHLORIDE
     Dosage: 3.75 MG, BID (2/DAY)
     Route: 048
     Dates: start: 20201010, end: 20201016
  6. PROPRANOLOL HYDROCHLORIDE [Suspect]
     Active Substance: PROPRANOLOL HYDROCHLORIDE
     Dosage: 4.125 MG, BID (2/DAY)
     Route: 048
     Dates: start: 20201017, end: 20201030
  7. PROPRANOLOL HYDROCHLORIDE [Suspect]
     Active Substance: PROPRANOLOL HYDROCHLORIDE
     Dosage: 4.5 MG, BID (2/DAY)
     Route: 048
     Dates: start: 20201031, end: 20201113
  8. PROPRANOLOL HYDROCHLORIDE [Suspect]
     Active Substance: PROPRANOLOL HYDROCHLORIDE
     Dosage: 4.875 MG, BID (2/DAY)
     Route: 048
     Dates: start: 20201114, end: 20201130
  9. PROPRANOLOL HYDROCHLORIDE [Suspect]
     Active Substance: PROPRANOLOL HYDROCHLORIDE
     Dosage: 5.625 MG, BID (2/DAY)
     Route: 048
     Dates: start: 20201201, end: 20210111
  10. UNSPECIFIED INGREDIENT [Concomitant]
     Active Substance: UNSPECIFIED INGREDIENT
     Indication: Infantile haemangioma
     Dosage: UNK
     Route: 061
  11. TRIAMCINOLONE ACETONIDE [Concomitant]
     Active Substance: TRIAMCINOLONE ACETONIDE
     Indication: Infantile haemangioma
     Dosage: UNK
     Route: 061
     Dates: start: 20200911, end: 20200911
  12. LUCENTIS [Concomitant]
     Active Substance: RANIBIZUMAB
     Indication: Retinopathy of prematurity
     Dosage: UNK
     Route: 061
     Dates: start: 20200915, end: 20200915
  13. FENTANYL [Concomitant]
     Active Substance: FENTANYL
     Indication: Product used for unknown indication
     Dosage: UNK
     Route: 042
     Dates: start: 20200915, end: 20200915
  14. ROCURONIUM BROMIDE [Concomitant]
     Active Substance: ROCURONIUM BROMIDE
     Indication: Muscle relaxant therapy
     Dosage: UNK
     Route: 042
     Dates: start: 20200915, end: 20200915
  15. SODIUM CHLORIDE [Concomitant]
     Active Substance: SODIUM CHLORIDE
     Indication: Hyponatraemia
     Dosage: UNK
     Route: 048
     Dates: start: 20200822, end: 20200916
  16. SODIUM CHLORIDE [Concomitant]
     Active Substance: SODIUM CHLORIDE
     Dosage: UNK
     Route: 048
     Dates: start: 20200917, end: 20200923
  17. CAFFEINE [Concomitant]
     Active Substance: CAFFEINE
     Indication: Apnoea
     Dosage: UNK
     Route: 048
     Dates: start: 20200820, end: 20200904
  18. CAFFEINE [Concomitant]
     Active Substance: CAFFEINE
     Dosage: UNK
     Route: 048
     Dates: start: 20200905, end: 20200921
  19. Incremin [Concomitant]
     Indication: Anaemia neonatal
     Dosage: UNK
     Route: 048
     Dates: start: 20200822, end: 20200904
  20. Incremin [Concomitant]
     Dosage: UNK
     Route: 048
     Dates: start: 20200905, end: 20210111
  21. VITAMINS [Concomitant]
     Active Substance: VITAMINS
     Indication: Vitamin supplementation
     Dosage: UNK
     Route: 048
     Dates: start: 20200822, end: 20200904
  22. FUROSEMIDE [Concomitant]
     Active Substance: FUROSEMIDE
     Indication: Chronic respiratory disease
     Dosage: UNK
     Route: 048
     Dates: start: 20200822, end: 20200923
  23. CEFMENOXIME HYDROCHLORIDE [Concomitant]
     Active Substance: CEFMENOXIME HYDROCHLORIDE
     Indication: Infection prophylaxis
     Dosage: UNK, OPTHALMIC
     Route: 065
     Dates: start: 20200911, end: 20200922
  24. CEFMENOXIME HYDROCHLORIDE [Concomitant]
     Active Substance: CEFMENOXIME HYDROCHLORIDE
     Dosage: UNK, OPTHALMIC
     Route: 065
     Dates: start: 20200915, end: 20200922
  25. EPOETIN ALFA [Concomitant]
     Active Substance: ERYTHROPOIETIN
     Indication: Anaemia neonatal
     Dosage: UNK
     Route: 058
     Dates: start: 20200721, end: 20200923

REACTIONS (1)
  - Retinopathy of prematurity [Not Recovered/Not Resolved]

NARRATIVE: CASE EVENT DATE: 20201014
